FAERS Safety Report 11944275 (Version 2)
Quarter: 2016Q1

REPORT INFORMATION
  Report Type: Report from Study
  Country: US (occurrence: US)
  Receive Date: 20160125
  Receipt Date: 20160209
  Transmission Date: 20160526
  Serious: Yes (Hospitalization, Other)
  Sender: FDA-Public Use
  Company Number: US-GILEAD-2016-0194254

PATIENT
  Age: 59 Year
  Sex: Female

DRUGS (5)
  1. HYDRALAZINE [Concomitant]
     Active Substance: HYDRALAZINE HYDROCHLORIDE
  2. AMBRISENTAN [Suspect]
     Active Substance: AMBRISENTAN
     Indication: PRODUCT USED FOR UNKNOWN INDICATION
     Dosage: 5 MG, QD
     Route: 065
     Dates: start: 20120921
  3. ELIQUIS [Concomitant]
     Active Substance: APIXABAN
  4. METOPROLOL                         /00376902/ [Concomitant]
     Active Substance: METOPROLOL
  5. TIKOSYN [Concomitant]
     Active Substance: DOFETILIDE

REACTIONS (1)
  - Pneumonia [Unknown]
